FAERS Safety Report 7378061-X (Version None)
Quarter: 2011Q1

REPORT INFORMATION
  Report Type: 
  Country: None (occurrence: None)
  Receive Date: 20110328
  Receipt Date: 20110317
  Transmission Date: 20110831
  Serious: Yes (Hospitalization)
  Sender: FDA-Public Use
  Company Number: SE-ASTRAZENECA-2011SE14930

PATIENT
  Age: 69 Year
  Sex: Female

DRUGS (6)
  1. SPIRONOLAKTON [Suspect]
     Route: 048
     Dates: end: 20110130
  2. LOSAZID [Concomitant]
     Route: 048
  3. TROMBYL [Concomitant]
     Route: 048
  4. SELOKEN ZOC [Suspect]
     Indication: ESSENTIAL HYPERTENSION
     Route: 048
     Dates: end: 20110130
  5. FELODIPINE [Concomitant]
  6. FUROSEMID [Concomitant]

REACTIONS (2)
  - HYPERKALAEMIA [None]
  - BRADYCARDIA [None]
